FAERS Safety Report 8157790-4 (Version None)
Quarter: 2012Q1

REPORT INFORMATION
  Report Type: 
  Country: None (occurrence: None)
  Receive Date: 20120222
  Receipt Date: 20110811
  Transmission Date: 20120608
  Serious: No
  Sender: FDA-Public Use
  Company Number: US-ASTRAZENECA-2011SE49026

PATIENT
  Sex: Male

DRUGS (3)
  1. CRESTOR [Suspect]
     Route: 048
  2. OMEPRAZOLE [Suspect]
     Route: 048
  3. LISINOPRIL AND HYDROCHLOROTHIAZIDE [Suspect]
     Route: 048

REACTIONS (1)
  - TYPE 2 DIABETES MELLITUS [None]
